FAERS Safety Report 6653419-2 (Version None)
Quarter: 2010Q1

REPORT INFORMATION
  Report Type: 
  Country: None (occurrence: None)
  Receive Date: 20100326
  Receipt Date: 20100318
  Transmission Date: 20100710
  Serious: Yes (Hospitalization, Other)
  Sender: FDA-Public Use
  Company Number: PHHY2010GR16457

PATIENT
  Age: 68 Year
  Sex: Female

DRUGS (2)
  1. ZOMETA [Suspect]
     Indication: METASTASES TO BONE
  2. SINTROM [Concomitant]

REACTIONS (3)
  - GASTRIC HAEMORRHAGE [None]
  - HYPOAESTHESIA ORAL [None]
  - PAIN IN JAW [None]
